FAERS Safety Report 10050201 (Version 1)
Quarter: 2014Q2

REPORT INFORMATION
  Report Type: Spontaneous
  Country: FR (occurrence: FR)
  Receive Date: 20140401
  Receipt Date: 20140401
  Transmission Date: 20141212
  Serious: Yes (Hospitalization, Other)
  Sender: FDA-Public Use
  Company Number: FR-PFIZER INC-2014086669

PATIENT
  Age: 34 Year
  Sex: Male

DRUGS (2)
  1. ADVIL [Suspect]
     Dosage: 1 DF, SINGLE
     Route: 048
     Dates: start: 20120626, end: 20120626
  2. ADVIL [Suspect]
     Dosage: INCREASING DOSES, THE LAST INTAKE OF 200 MG
     Dates: start: 20120829

REACTIONS (9)
  - Bronchospasm [Recovered/Resolved]
  - Oxygen saturation decreased [Recovered/Resolved]
  - Eye pruritus [Recovered/Resolved]
  - Rhinorrhoea [Recovered/Resolved]
  - Cough [Recovered/Resolved]
  - Asthma [Recovered/Resolved]
  - Dyspnoea [Recovered/Resolved]
  - Wheezing [Recovered/Resolved]
  - Hypersensitivity [Recovered/Resolved]
